FAERS Safety Report 17611066 (Version 1)
Quarter: 2020Q2

REPORT INFORMATION
  Report Type: Spontaneous
  Country: US (occurrence: US)
  Receive Date: 20200401
  Receipt Date: 20200401
  Transmission Date: 20200713
  Serious: Yes (Disabling, Other)
  Sender: FDA-Public Use
  Company Number: None

PATIENT
  Age: 76 Year
  Sex: Female
  Weight: 77.1 kg

DRUGS (2)
  1. PLAQUENIL [Suspect]
     Active Substance: HYDROXYCHLOROQUINE SULFATE
  2. AZITHROMYCIN 500 MG IV [Concomitant]

REACTIONS (2)
  - Electrocardiogram QT prolonged [None]
  - Immunosuppressant drug level increased [None]

NARRATIVE: CASE EVENT DATE: 20200325
